FAERS Safety Report 5937715-X (Version None)
Quarter: 2008Q4

REPORT INFORMATION
  Report Type: 
  Country: None (occurrence: None)
  Receive Date: 20081029
  Receipt Date: 20081014
  Transmission Date: 20090506
  Serious: Yes (Other)
  Sender: FDA-Public Use
  Company Number: DSM-2008-00932

PATIENT
  Age: 72 Year
  Sex: Male

DRUGS (8)
  1. OLMESARTAN MEDOXOMIL [Suspect]
     Indication: HYPERTENSION
     Dosage: 20 MG (20 MG, 1 IN 1 D), ORAL
     Route: 048
  2. ZIMOVANE (ZOPICLONE) (ZOPICLONE) [Concomitant]
  3. NSA (ALBUMIN HUMAN) (TABLET) (ALBUMIN HUMAN) [Concomitant]
  4. ESOMEPRAZOLE (ESOMEPRAZOLE) (ESOMEPRAZOLE) [Concomitant]
  5. ATORVASTATIN (ATORVASTATIN) (ATORVASTATIN) [Concomitant]
  6. BISOPROLOL FUMARATE [Concomitant]
  7. ORUVAIL (KETOPROFEN) (KETOPROFEN) [Concomitant]
  8. VALSARTAN (VALSARTAN) (VALSARTAN) [Concomitant]

REACTIONS (3)
  - ARTHRALGIA [None]
  - JOINT RANGE OF MOTION DECREASED [None]
  - JOINT SWELLING [None]
